FAERS Safety Report 6878174-2 (Version None)
Quarter: 2010Q2

REPORT INFORMATION
  Report Type: 
  Country: None (occurrence: None)
  Receive Date: 20100623
  Receipt Date: 20080710
  Transmission Date: 20101027
  Serious: No
  Sender: FDA-Public Use
  Company Number: 2008-00100

PATIENT
  Sex: Male
  Weight: 77.1115 kg

DRUGS (4)
  1. ZICAM INTENSE SINUS RELIEF [Suspect]
     Dosage: BID X 2 DAYS
     Dates: start: 20080510, end: 20080512
  2. METFORMIN HCL [Concomitant]
  3. LOVASTATIN [Concomitant]
  4. NIACIN [Concomitant]

REACTIONS (2)
  - AGEUSIA [None]
  - ANOSMIA [None]
